FAERS Safety Report 5120650-7 (Version None)
Quarter: 2006Q4

REPORT INFORMATION
  Report Type: 
  Country: None (occurrence: None)
  Receive Date: 20061002
  Receipt Date: 20060913
  Transmission Date: 20070319
  Serious: Yes (Hospitalization)
  Sender: FDA-Public Use
  Company Number: ES200609002991

PATIENT
  Age: 15 Year
  Sex: Female
  Weight: 40.2 kg

DRUGS (1)
  1. B4Z-XM-LYDM EFFICACY AND SAFETY OF ATX (ATOMOXETINE HYDROCHLORIDE)CAPS [Suspect]
     Dosage: 60 MG, DAILY (1/D), ORAL
     Route: 048
     Dates: start: 20060920

REACTIONS (1)
  - APPENDICITIS [None]
